FAERS Safety Report 8106414-0 (Version None)
Quarter: 2012Q1

REPORT INFORMATION
  Report Type: 
  Country: None (occurrence: None)
  Receive Date: 20120202
  Receipt Date: 20120130
  Transmission Date: 20120608
  Serious: Yes (Death, Hospitalization, Other)
  Sender: FDA-Public Use
  Company Number: US-CELGENEUS-163-21880-10102828

PATIENT
  Sex: Female

DRUGS (18)
  1. VANCOMYCIN [Concomitant]
     Route: 065
  2. CLARITIN [Concomitant]
     Dosage: 10 MILLIGRAM
     Route: 065
  3. ZITHROMAX [Concomitant]
     Dosage: 250 MILLIGRAM
     Route: 065
  4. ARMODAFINIL [Concomitant]
     Dosage: 200 MILLIGRAM
     Route: 065
  5. ZOVIRAX [Concomitant]
     Dosage: 400 MILLIGRAM
     Route: 065
  6. FLOVENT [Concomitant]
     Dosage: 2 PUFFS
     Route: 065
  7. VENTOLIN [Concomitant]
     Dosage: 2 PUFFS
     Route: 065
  8. REVLIMID [Suspect]
     Dosage: 10 MILLIGRAM
     Route: 048
     Dates: end: 20110401
  9. COMPAZINE [Concomitant]
     Dosage: 10 MILLIGRAM
     Route: 065
  10. ACYCLOVIR [Concomitant]
     Dosage: 400 MILLIGRAM
     Route: 065
     Dates: start: 20101021
  11. CEFEPIME [Concomitant]
     Route: 065
  12. PRINIVIL [Concomitant]
     Dosage: 40 MILLIGRAM
     Route: 065
  13. THERAPEUTIC VITAMINS [Concomitant]
     Route: 065
  14. PEPCID [Concomitant]
     Dosage: 20 MILLIGRAM
     Route: 065
  15. REVLIMID [Suspect]
     Dosage: 25 MILLIGRAM
     Route: 048
     Dates: start: 20100901
  16. VELCADE [Suspect]
     Dosage: 1.7 MILLIGRAM
     Route: 041
     Dates: start: 20100820, end: 20100827
  17. CIPROFLOXACIN [Concomitant]
     Dosage: 500 MILLIGRAM
     Route: 065
     Dates: end: 20101021
  18. DEXAMETHASONE [Concomitant]
     Dosage: 20 MILLIGRAM
     Route: 065
     Dates: start: 20100818, end: 20100828

REACTIONS (4)
  - MULTIPLE MYELOMA [None]
  - NEUROPATHY PERIPHERAL [None]
  - LUNG INFILTRATION [None]
  - RASH [None]
